FAERS Safety Report 24076682 (Version 1)
Quarter: 2024Q3

REPORT INFORMATION
  Report Type: Spontaneous
  Country: US (occurrence: US)
  Receive Date: 20240711
  Receipt Date: 20240711
  Transmission Date: 20241016
  Serious: Yes (Hospitalization)
  Sender: STRIDES
  Company Number: US-STRIDES ARCOLAB LIMITED-2024SP008068

PATIENT
  Age: 52 Day

DRUGS (24)
  1. LEVETIRACETAM [Suspect]
     Active Substance: LEVETIRACETAM
     Indication: Status epilepticus
     Dosage: 60 MILLIGRAM/KILOGRAM
     Route: 042
  2. LEVETIRACETAM [Suspect]
     Active Substance: LEVETIRACETAM
     Dosage: 15 MILLIGRAM/KILOGRAM/DOSE, BID
     Route: 042
  3. LEVETIRACETAM [Suspect]
     Active Substance: LEVETIRACETAM
     Dosage: 30 MILLIGRAM/KILOGRAM/DOSE, BID
     Route: 048
  4. LORAZEPAM [Suspect]
     Active Substance: LORAZEPAM
     Indication: Status epilepticus
     Dosage: 0.1 MILLIGRAM/KILOGRAM
     Route: 042
  5. PHENOBARBITAL [Concomitant]
     Active Substance: PHENOBARBITAL
     Indication: Status epilepticus
     Dosage: 20 MILLIGRAM/KILOGRAM
     Route: 042
  6. PHENOBARBITAL [Concomitant]
     Active Substance: PHENOBARBITAL
     Dosage: 10 MILLIGRAM/KILOGRAM
     Route: 042
  7. PHENOBARBITAL [Concomitant]
     Active Substance: PHENOBARBITAL
     Dosage: UNK (ADDITIONAL DOSE)
     Route: 065
  8. FOSPHENYTOIN [Concomitant]
     Active Substance: FOSPHENYTOIN
     Indication: Status epilepticus
     Dosage: 20 MG PES/KG
     Route: 042
  9. FOSPHENYTOIN [Concomitant]
     Active Substance: FOSPHENYTOIN
     Dosage: 10 MG PES/KG
     Route: 042
  10. FOSPHENYTOIN [Concomitant]
     Active Substance: FOSPHENYTOIN
     Dosage: UNK (MIDAZOLAM, FOLLOWED BY FOSPHENYTOIN)
     Route: 065
  11. MIDAZOLAM [Concomitant]
     Active Substance: MIDAZOLAM
     Indication: Status epilepticus
     Dosage: 0.1 MILLIGRAM/KILOGRAM, EVERY HOUR
     Route: 042
  12. MIDAZOLAM [Concomitant]
     Active Substance: MIDAZOLAM
     Dosage: 0.5 MILLIGRAM/KILOGRAM, EVERY HOUR 9OVER 12HOURS)
     Route: 042
  13. MIDAZOLAM [Concomitant]
     Active Substance: MIDAZOLAM
     Dosage: 0.1 MILLIGRAM/KILOGRAM, EVERY HOUR WITHIN 60?HOURS
     Route: 042
  14. MIDAZOLAM [Concomitant]
     Active Substance: MIDAZOLAM
     Dosage: UNK (INTRANASAL)
     Route: 045
  15. MIDAZOLAM [Concomitant]
     Active Substance: MIDAZOLAM
     Dosage: UNK (RECEIVED ADDITOINAL MIDAZOLAM AT NICU)
     Route: 065
  16. PENTOBARBITAL [Concomitant]
     Active Substance: PENTOBARBITAL
     Indication: Status epilepticus
     Dosage: 1 MILLIGRAM/KILOGRAM, EVERY HOUR
     Route: 065
  17. PENTOBARBITAL [Concomitant]
     Active Substance: PENTOBARBITAL
     Dosage: 2 MILLIGRAM/KILOGRAM, EVERY HOUR
     Route: 065
  18. PENTOBARBITAL [Concomitant]
     Active Substance: PENTOBARBITAL
     Dosage: 10 MILLIGRAM/KILOGRAM, BID (ON HOSPITAL DAYS?4 THROUGH 7)
     Route: 042
  19. KETAMINE [Concomitant]
     Active Substance: KETAMINE
     Indication: Status epilepticus
     Dosage: 1 MILLIGRAM/KILOGRAM (OVER 2 TO 3 MINUTES)
     Route: 040
  20. KETAMINE [Concomitant]
     Active Substance: KETAMINE
     Dosage: 1 MILLIGRAM/KILOGRAM, EVERY HOUR (INFUSION) (ON HOSPITAL DAY?52)
     Route: 042
  21. KETAMINE [Concomitant]
     Active Substance: KETAMINE
     Dosage: UNK, CONTINUOUS INFUSION WAS REINITIATED
     Route: 065
  22. KETAMINE [Concomitant]
     Active Substance: KETAMINE
     Dosage: UNK (KETAMINE, FOLLOWED BY A CONTINUOUS KETAMINE INFUSION WAS STARTED)
     Route: 065
  23. TOPIRAMATE [Concomitant]
     Active Substance: TOPIRAMATE
     Indication: Status epilepticus
     Dosage: UNK
     Route: 065
  24. TOPIRAMATE [Concomitant]
     Active Substance: TOPIRAMATE
     Dosage: 2 MILLIGRAM/KILOGRAM/DOSE (RECEIVED ADDITIONAL DOSE AT NICU)
     Route: 048

REACTIONS (1)
  - Therapy non-responder [Unknown]
